FAERS Safety Report 5187632-0 (Version None)
Quarter: 2006Q4

REPORT INFORMATION
  Report Type: 
  Country: None (occurrence: None)
  Receive Date: 20061220
  Receipt Date: 20051205
  Transmission Date: 20070319
  Serious: No
  Sender: FDA-Public Use
  Company Number: US-AMGEN-US160355

PATIENT

DRUGS (2)
  1. ENBREL [Suspect]
     Indication: DRUG USE FOR UNKNOWN INDICATION
     Route: 065
     Dates: start: 20050101
  2. INFLIXIMAB [Concomitant]
     Route: 065

REACTIONS (2)
  - CONDITION AGGRAVATED [None]
  - PUSTULAR PSORIASIS [None]
